FAERS Safety Report 9024212 (Version 2)
Quarter: 2013Q1

REPORT INFORMATION
  Report Type: Spontaneous
  Country: US (occurrence: US)
  Receive Date: 20130122
  Receipt Date: 20130125
  Transmission Date: 20140127
  Serious: Yes (Disabling, Other)
  Sender: FDA-Public Use
  Company Number: US-MERCK-1301USA007733

PATIENT
  Age: 49 None
  Sex: Female

DRUGS (4)
  1. SAPHRIS [Suspect]
     Dosage: 10 MG, QD, FREQUENCY QHS
     Route: 060
     Dates: start: 20121224
  2. RITALIN [Concomitant]
  3. EFFEXOR [Concomitant]
  4. COGENTIN [Concomitant]
     Dosage: 1 MG, UNK

REACTIONS (2)
  - Cerebrovascular accident [Recovering/Resolving]
  - Muscle spasms [Recovered/Resolved]
